FAERS Safety Report 11075070 (Version 1)
Quarter: 2015Q2

REPORT INFORMATION
  Report Type: Spontaneous
  Country: US (occurrence: None)
  Receive Date: 20150428
  Receipt Date: 20150428
  Transmission Date: 20150821
  Serious: No
  Sender: FDA-Public Use
  Company Number: None

PATIENT
  Sex: Female

DRUGS (2)
  1. XELJANZ [Suspect]
     Active Substance: TOFACITINIB CITRATE
     Indication: RHEUMATOID ARTHRITIS
     Dosage: XELJANZ 5MG (B) 60/BTL  TWICE DAILY ORAL
     Route: 048
     Dates: start: 20150303
  2. XELJANZ [Suspect]
     Active Substance: TOFACITINIB CITRATE
     Indication: INFLAMMATION
     Dosage: XELJANZ 5MG (B) 60/BTL  TWICE DAILY ORAL
     Route: 048
     Dates: start: 20150303

REACTIONS (1)
  - Drug intolerance [None]
